FAERS Safety Report 6268853-2 (Version None)
Quarter: 2009Q3

REPORT INFORMATION
  Report Type: 
  Country: None (occurrence: None)
  Receive Date: 20090715
  Receipt Date: 20090708
  Transmission Date: 20100115
  Serious: Yes (Life-Threatening, Hospitalization, Disabling)
  Sender: FDA-Public Use
  Company Number: US-AMGEN-QUU353652

PATIENT
  Age: 50 Year
  Sex: Female
  Weight: 67.2 kg

DRUGS (1)
  1. ENBREL [Suspect]
     Indication: RHEUMATOID ARTHRITIS
     Route: 058
     Dates: start: 19990101, end: 20090101

REACTIONS (7)
  - KLEBSIELLA INFECTION [None]
  - MECHANICAL VENTILATION [None]
  - NECROTISING FASCIITIS STREPTOCOCCAL [None]
  - RESPIRATORY MONILIASIS [None]
  - RESPIRATORY TRACT INFECTION [None]
  - STREPTOCOCCAL BACTERAEMIA [None]
  - WOUND INFECTION [None]
